FAERS Safety Report 5295643-X (Version None)
Quarter: 2007Q2

REPORT INFORMATION
  Report Type: 
  Country: None (occurrence: None)
  Receive Date: 20070410
  Receipt Date: 20070410
  Transmission Date: 20071010
  Serious: Yes (Other)
  Sender: FDA-Public Use
  Company Number: None

PATIENT
  Age: 71 Year
  Sex: Male
  Weight: 94.8 kg

DRUGS (6)
  1. THYMOGLOBULIN [Suspect]
     Indication: COMPLICATIONS OF TRANSPLANT SURGERY
     Dosage: 150 MG DAILY IV DRIP
     Route: 041
     Dates: start: 20070406, end: 20070408
  2. MYFORTIC [Concomitant]
  3. ESOMEPRAZOLE MAGNESIUM [Concomitant]
  4. ROSUVASTATIN [Concomitant]
  5. METHYLPREDNISOLONE SODIUM SUCCINATE [Concomitant]
  6. DOCUSATE [Concomitant]

REACTIONS (2)
  - PLATELET COUNT DECREASED [None]
  - POST PROCEDURAL COMPLICATION [None]
